FAERS Safety Report 12302711 (Version 1)
Quarter: 2016Q2

REPORT INFORMATION
  Report Type: Spontaneous
  Country: US (occurrence: US)
  Receive Date: 20160425
  Receipt Date: 20160425
  Transmission Date: 20160815
  Serious: Yes (Other)
  Sender: FDA-Public Use
  Company Number: US-BAUSCH-BL-2016-009263

PATIENT
  Sex: Female
  Weight: 49.94 kg

DRUGS (5)
  1. LATANOPROST OPHTHALMIC SOLUTION 0.005% [Suspect]
     Active Substance: LATANOPROST
     Indication: PRODUCT USED FOR UNKNOWN INDICATION
     Route: 047
  2. HYDROCHLOROTHIAZIDE. [Concomitant]
     Active Substance: HYDROCHLOROTHIAZIDE
     Indication: HYPERTENSION
     Route: 048
  3. TIMOLOL. [Suspect]
     Active Substance: TIMOLOL
     Indication: PRODUCT USED FOR UNKNOWN INDICATION
     Route: 047
  4. ARTIFICAL TEARS (GLYCERIN\PROPYLENE GLYCOL) [Suspect]
     Active Substance: GLYCERIN\PROPYLENE GLYCOL
     Indication: PRODUCT USED FOR UNKNOWN INDICATION
     Dosage: AS NEEDED
     Route: 047
  5. LOSARTAN. [Concomitant]
     Active Substance: LOSARTAN
     Indication: HYPERTENSION
     Route: 048

REACTIONS (6)
  - Weight decreased [Unknown]
  - Rhinorrhoea [Unknown]
  - Dry eye [Unknown]
  - Decreased appetite [Unknown]
  - Ageusia [Unknown]
  - Anosmia [Unknown]

NARRATIVE: CASE EVENT DATE: 2015
